FAERS Safety Report 10143098 (Version 2)
Quarter: 2014Q2

REPORT INFORMATION
  Report Type: Report from Study
  Country: AU (occurrence: AU)
  Receive Date: 20140430
  Receipt Date: 20140604
  Transmission Date: 20141212
  Serious: Yes (Other)
  Sender: FDA-Public Use
  Company Number: AU-SA-2014SA037729

PATIENT
  Age: 59 Year
  Sex: Female

DRUGS (20)
  1. LANTUS [Suspect]
     Indication: TYPE 2 DIABETES MELLITUS
     Route: 058
     Dates: start: 20070101
  2. LANTUS [Suspect]
     Indication: TYPE 2 DIABETES MELLITUS
     Route: 058
  3. LANTUS [Suspect]
     Indication: TYPE 2 DIABETES MELLITUS
     Route: 058
     Dates: start: 20140325
  4. LANTUS [Suspect]
     Indication: TYPE 2 DIABETES MELLITUS
     Dosage: DOSE:24 UNIT(S)
     Route: 065
  5. METFORMIN [Suspect]
     Indication: TYPE 2 DIABETES MELLITUS
     Route: 065
  6. KARVEA [Concomitant]
  7. MAGNESIUM [Concomitant]
  8. ANTIHYPERTENSIVES [Concomitant]
  9. CHOLESTEROL- AND TRIGLYCERIDE REDUCERS [Concomitant]
  10. METFORMIN [Concomitant]
  11. IRBESARTAN [Concomitant]
  12. LERCADIP [Concomitant]
  13. PRAVASTATIN [Concomitant]
  14. ASPIRIN [Concomitant]
     Dosage: FOR MANY YEARS
  15. ENDEP [Concomitant]
  16. DIAZEPAM [Concomitant]
  17. EPIVAL [Concomitant]
  18. VITAMIN B [Concomitant]
  19. ALL OTHER THERAPEUTIC PRODUCTS [Concomitant]
  20. PANADOL OSTEO [Concomitant]

REACTIONS (12)
  - Haematemesis [Recovered/Resolved]
  - Gingival bleeding [Recovered/Resolved]
  - Diarrhoea [Recovered/Resolved]
  - Dizziness [Unknown]
  - Hypoglycaemia [Recovered/Resolved]
  - Hyperglycaemia [Unknown]
  - Sleep apnoea syndrome [Recovering/Resolving]
  - Weight decreased [Unknown]
  - Anxiety [Unknown]
  - Needle issue [Unknown]
  - Blood glucose decreased [Recovering/Resolving]
  - Drug administration error [Unknown]
